FAERS Safety Report 21422167 (Version 1)
Quarter: 2022Q4

REPORT INFORMATION
  Report Type: Spontaneous
  Country: None (occurrence: FR)
  Receive Date: 20221007
  Receipt Date: 20221007
  Transmission Date: 20230113
  Serious: Yes (Death)
  Sender: FDA-Public Use
  Company Number: FR-B.Braun Medical Inc.-2133547

PATIENT
  Age: 44 Year
  Sex: Male

DRUGS (2)
  1. ACETAMINOPHEN [Suspect]
     Active Substance: ACETAMINOPHEN
  2. CODEINE [Suspect]
     Active Substance: CODEINE

REACTIONS (1)
  - Poisoning deliberate [Fatal]
